FAERS Safety Report 13503083 (Version 1)
Quarter: 2017Q2

REPORT INFORMATION
  Report Type: Spontaneous
  Country: US (occurrence: US)
  Receive Date: 20170501
  Receipt Date: 20170501
  Transmission Date: 20170830
  Serious: No
  Sender: FDA-Public Use
  Company Number: None

PATIENT
  Age: 67 Year
  Sex: Male

DRUGS (1)
  1. ZYTIGA [Suspect]
     Active Substance: ABIRATERONE ACETATE
     Dosage: 6/15/2016STILL ON 5/1/2017? ?
     Route: 048
     Dates: start: 20160615

REACTIONS (3)
  - Pain [None]
  - Fall [None]
  - Metastases to bone [None]

NARRATIVE: CASE EVENT DATE: 20170429
